FAERS Safety Report 5522631-8 (Version None)
Quarter: 2007Q4

REPORT INFORMATION
  Report Type: 
  Country: None (occurrence: None)
  Receive Date: 20071120
  Receipt Date: 20071108
  Transmission Date: 20080405
  Serious: Yes (Other)
  Sender: FDA-Public Use
  Company Number: JP-PFIZER INC-2007095428

PATIENT
  Age: 65 Year
  Sex: Female

DRUGS (9)
  1. CELECOX [Suspect]
     Indication: SPINAL OSTEOARTHRITIS
     Route: 048
     Dates: start: 20070912, end: 20071107
  2. ALL OTHER THERAPEUTIC PRODUCTS [Concomitant]
     Route: 048
  3. ADOFEED [Concomitant]
  4. INDOMETHACIN [Concomitant]
  5. CIMETIDINE [Concomitant]
     Route: 048
  6. BUFFERIN [Concomitant]
     Route: 048
  7. DILTIAZEM HYDROCHLORIDE [Concomitant]
     Route: 048
  8. ALL OTHER THERAPEUTIC PRODUCTS [Concomitant]
     Route: 048
  9. WARFARIN SODIUM [Concomitant]
     Route: 048

REACTIONS (3)
  - ABDOMINAL PAIN UPPER [None]
  - DRY EYE [None]
  - DRY MOUTH [None]
